FAERS Safety Report 23769524 (Version 1)
Quarter: 2024Q2

REPORT INFORMATION
  Report Type: Spontaneous
  Country: US (occurrence: None)
  Receive Date: 20240421
  Receipt Date: 20240421
  Transmission Date: 20240716
  Serious: No
  Sender: FDA-Public Use
  Company Number: None

PATIENT
  Age: 93 Year
  Sex: Male

DRUGS (1)
  1. ESCITALOPRAM OXALATE [Suspect]
     Active Substance: ESCITALOPRAM OXALATE
     Dosage: FREQUENCY : DAILY;?
     Route: 048
     Dates: start: 202306, end: 20230627

REACTIONS (2)
  - Lethargy [None]
  - Mental status changes [None]

NARRATIVE: CASE EVENT DATE: 20230623
